FAERS Safety Report 21812649 (Version 1)
Quarter: 2022Q4

REPORT INFORMATION
  Report Type: Spontaneous
  Country: US (occurrence: None)
  Receive Date: 20221231
  Receipt Date: 20221231
  Transmission Date: 20230113
  Serious: Yes (Other)
  Sender: FDA-Public Use
  Company Number: None

PATIENT
  Age: 68 Year
  Sex: Female
  Weight: 73.35 kg

DRUGS (6)
  1. REPATHA [Suspect]
     Active Substance: EVOLOCUMAB
     Indication: Blood cholesterol increased
     Dosage: OTHER QUANTITY : 1 INJECTION(S);?OTHER FREQUENCY : ONE EVERY TWO WEEK;?
     Route: 058
     Dates: start: 20221215
  2. SYNTHROID [Concomitant]
     Active Substance: LEVOTHYROXINE SODIUM
  3. LEXAPRO [Concomitant]
     Active Substance: ESCITALOPRAM OXALATE
  4. HYOSYOMINE [Concomitant]
  5. ATENOLOL [Concomitant]
  6. ONE A DAY WOMEN OVER 50 [Concomitant]

REACTIONS (8)
  - Influenza like illness [None]
  - Myalgia [None]
  - Abdominal discomfort [None]
  - Decreased appetite [None]
  - Muscle spasms [None]
  - Muscle spasms [None]
  - Pain [None]
  - Product complaint [None]

NARRATIVE: CASE EVENT DATE: 20221229
